FAERS Safety Report 13331336 (Version 1)
Quarter: 2017Q1

REPORT INFORMATION
  Report Type: Spontaneous
  Country: US (occurrence: US)
  Receive Date: 20170313
  Receipt Date: 20170313
  Transmission Date: 20170428
  Serious: Yes (Disabling)
  Sender: FDA-Public Use
  Company Number: None

PATIENT
  Age: 35 Year
  Sex: Female
  Weight: 77.63 kg

DRUGS (2)
  1. MIRENA [Suspect]
     Active Substance: LEVONORGESTREL
  2. VITAMIN B [Concomitant]
     Active Substance: VITAMIN B

REACTIONS (8)
  - Dysmenorrhoea [None]
  - Amenorrhoea [None]
  - Weight increased [None]
  - Breast tenderness [None]
  - Ovarian cyst [None]
  - Arthralgia [None]
  - Gastrooesophageal reflux disease [None]
  - Hot flush [None]

NARRATIVE: CASE EVENT DATE: 20170303
